FAERS Safety Report 21123853 (Version 1)
Quarter: 2022Q3

REPORT INFORMATION
  Report Type: Spontaneous
  Country: US (occurrence: US)
  Receive Date: 20220725
  Receipt Date: 20220725
  Transmission Date: 20221027
  Serious: No
  Sender: FDA-Public Use
  Company Number: US-MTPC-MTDA2022-0019327

PATIENT
  Age: 45 Year
  Sex: Male

DRUGS (1)
  1. RADICAVA [Suspect]
     Active Substance: EDARAVONE
     Indication: Product used for unknown indication
     Dosage: 60 MILLIGRAM, FOR 10 DAYS AND THEN A 14 DAY DRUG HOLIDAY
     Route: 042
     Dates: end: 20220704

REACTIONS (1)
  - Product dose omission issue [Unknown]

NARRATIVE: CASE EVENT DATE: 20220704
